FAERS Safety Report 19739123 (Version 1)
Quarter: 2021Q3

REPORT INFORMATION
  Report Type: Spontaneous
  Country: ES (occurrence: ES)
  Receive Date: 20210824
  Receipt Date: 20210824
  Transmission Date: 20211014
  Serious: Yes (Other)
  Sender: FDA-Public Use
  Company Number: ES-PFIZER INC-202101016306

PATIENT
  Age: 32 Year
  Sex: Female
  Weight: 54 kg

DRUGS (14)
  1. ENDOVELLE [Interacting]
     Active Substance: DIENOGEST
     Indication: ADENOMYOSIS
  2. OMEGA 3 [FISH OIL] [Interacting]
     Active Substance: FISH OIL
     Dosage: 1X/DAY
     Dates: start: 20201228
  3. PRISTIQ EXTENDED?RELEASE [Interacting]
     Active Substance: DESVENLAFAXINE SUCCINATE
     Indication: ANXIETY
     Dosage: 100 MG, 1X/DAY, CHRONIC
     Dates: start: 20210412
  4. GABAPENTINA CINFA [Interacting]
     Active Substance: GABAPENTIN
     Indication: NEURALGIA
     Dosage: 1200 MG, 3X/DAY
     Dates: start: 20201215
  5. MELATONIN [Interacting]
     Active Substance: MELATONIN
     Dosage: 1 TABLET, 1X/DAY
     Dates: start: 20210208
  6. VITAMIN D3 [Interacting]
     Active Substance: CHOLECALCIFEROL
     Dosage: 2 CAPSULES, 1X/DAY
     Dates: start: 20201221
  7. DUPHALAC [Interacting]
     Active Substance: LACTULOSE
     Indication: CONSTIPATION
     Dosage: 1 SACHET, 1X/DAY
     Dates: start: 20201222
  8. GLUTAMINA 5800 MAX [Interacting]
     Active Substance: GLUTAMINE
     Dosage: 3 MG, 1X/DAY
     Dates: start: 20201116
  9. COMIRNATY [Suspect]
     Active Substance: TOZINAMERAN
     Indication: COVID-19 IMMUNISATION
     Dosage: DOSE 1, SINGLE
     Dates: start: 20210726, end: 20210726
  10. TRAMADOL STADA [Interacting]
     Active Substance: TRAMADOL HYDROCHLORIDE
     Indication: ENDOMETRIOSIS
  11. PLACINORAL [Interacting]
     Active Substance: LORAZEPAM
     Indication: INSOMNIA
     Dosage: 2 MG, 1X/DAY, CHRONIC
     Dates: start: 20201113
  12. RABEPRAZOL CINFA [Interacting]
     Active Substance: RABEPRAZOLE SODIUM
     Indication: PROPHYLAXIS
     Dosage: 20 MG, 1X/DAY
     Dates: start: 20201223
  13. ENDOVELLE [Interacting]
     Active Substance: DIENOGEST
     Indication: ENDOMETRIOSIS
     Dosage: 2 MG, 1X/DAY
     Dates: start: 20210621
  14. TRAMADOL STADA [Interacting]
     Active Substance: TRAMADOL HYDROCHLORIDE
     Indication: PAIN
     Dosage: 100 MG, 3X/DAY, CHRONIC
     Dates: start: 20201120

REACTIONS (16)
  - Back pain [Recovering/Resolving]
  - Headache [Recovering/Resolving]
  - Fatigue [Recovering/Resolving]
  - Myalgia [Recovering/Resolving]
  - Bone pain [Recovering/Resolving]
  - Body temperature increased [Recovering/Resolving]
  - Off label use [Unknown]
  - Muscle spasms [Recovering/Resolving]
  - Adnexa uteri pain [Recovering/Resolving]
  - Nausea [Recovering/Resolving]
  - Movement disorder [Recovering/Resolving]
  - Uterine pain [Recovering/Resolving]
  - Illogical thinking [Recovering/Resolving]
  - Speech disorder [Recovering/Resolving]
  - Drug interaction [Recovering/Resolving]
  - Arthralgia [Recovering/Resolving]

NARRATIVE: CASE EVENT DATE: 20210412
